FAERS Safety Report 25818742 (Version 1)
Quarter: 2025Q3

REPORT INFORMATION
  Report Type: Spontaneous
  Country: KR (occurrence: KR)
  Receive Date: 20250918
  Receipt Date: 20250918
  Transmission Date: 20251021
  Serious: Yes (Death)
  Sender: MERCK SHARP & DOHME LLC
  Company Number: KR-009507513-2330204

PATIENT
  Sex: Male
  Weight: 71.8 kg

DRUGS (3)
  1. INVANZ [Suspect]
     Active Substance: ERTAPENEM SODIUM
     Indication: Pneumonia
     Route: 042
     Dates: start: 20240619, end: 20240624
  2. LEVOFLOXACIN [Suspect]
     Active Substance: LEVOFLOXACIN
     Indication: Pneumonia
     Route: 042
     Dates: start: 20240621, end: 20240625
  3. MEROPENEM [Suspect]
     Active Substance: MEROPENEM
     Indication: Pneumonia
     Route: 042
     Dates: start: 20240624, end: 20240628

REACTIONS (1)
  - Clostridium difficile colitis [Fatal]

NARRATIVE: CASE EVENT DATE: 20240625
